FAERS Safety Report 13325408 (Version 1)
Quarter: 2017Q1

REPORT INFORMATION
  Report Type: Spontaneous
  Country: US (occurrence: US)
  Receive Date: 20170310
  Receipt Date: 20170310
  Transmission Date: 20170428
  Serious: No
  Sender: FDA-Public Use
  Company Number: US-PERRIGO-16US001500

PATIENT
  Age: 64 Year
  Sex: Male
  Weight: 95.24 kg

DRUGS (1)
  1. TESTOSTERONE CYPIONATE USP RX 200 MG/ML 6V3 [Suspect]
     Active Substance: TESTOSTERONE CYPIONATE
     Indication: BLOOD TESTOSTERONE DECREASED
     Dosage: 300 MG, EVERY TWO WEEKS
     Route: 030
     Dates: start: 2015

REACTIONS (2)
  - Hypertrichosis [Not Recovered/Not Resolved]
  - Blood pressure increased [Recovering/Resolving]

NARRATIVE: CASE EVENT DATE: 201511
